FAERS Safety Report 23432712 (Version 2)
Quarter: 2024Q1

REPORT INFORMATION
  Report Type: Other
  Country: US (occurrence: US)
  Receive Date: 20240123
  Receipt Date: 20240321
  Transmission Date: 20240410
  Serious: Yes (Other)
  Sender: FDA-Public Use
  Company Number: US-Fagron Sterile Services-2151788

PATIENT

DRUGS (1)
  1. BUPIVACAINE\FENTANYL CITRATE [Suspect]
     Active Substance: BUPIVACAINE\FENTANYL CITRATE

REACTIONS (1)
  - Adverse reaction [Unknown]
